FAERS Safety Report 5443558-6 (Version None)
Quarter: 2007Q3

REPORT INFORMATION
  Report Type: 
  Country: None (occurrence: None)
  Receive Date: 20070905
  Receipt Date: 20070827
  Transmission Date: 20080115
  Serious: Yes (Other)
  Sender: FDA-Public Use
  Company Number: US-ROCHE-491468

PATIENT
  Age: 16 Year
  Sex: Male

DRUGS (2)
  1. ACCUTANE [Suspect]
     Route: 048
     Dates: start: 20070306, end: 20070403
  2. ACCUTANE [Suspect]
     Dosage: SECOND INDICATION REPORTED AS ACNE AND TAKES 3 CAPSULES BY MOUTH EVERY MORNING.
     Route: 048
     Dates: start: 20070628

REACTIONS (2)
  - HYPERKALAEMIA [None]
  - VITAMIN D DEFICIENCY [None]
